FAERS Safety Report 5934035-4 (Version None)
Quarter: 2008Q4

REPORT INFORMATION
  Report Type: 
  Country: None (occurrence: None)
  Receive Date: 20081029
  Receipt Date: 20081023
  Transmission Date: 20090506
  Serious: Yes (Other)
  Sender: FDA-Public Use
  Company Number: FR-ASTRAZENECA-2008CG01333

PATIENT
  Age: 11803 Day
  Sex: Female
  Weight: 66 kg

DRUGS (5)
  1. ZOMIG [Suspect]
     Indication: HEADACHE
     Route: 048
     Dates: start: 20030404
  2. AVLOCARDYL [Concomitant]
     Indication: HEADACHE
     Dates: start: 20031202
  3. ACETAMINOPHEN [Concomitant]
     Indication: HEADACHE
  4. DIANE 35 [Concomitant]
     Indication: CONTRACEPTION
     Dates: start: 20030404, end: 20030913
  5. LEVONORGESTREL AND ETHINYL ESTRADIOL [Concomitant]
     Indication: CONTRACEPTION
     Dates: start: 20030101, end: 20050101

REACTIONS (2)
  - HEADACHE [None]
  - INTENTIONAL DRUG MISUSE [None]
